FAERS Safety Report 7482748-8 (Version None)
Quarter: 2011Q2

REPORT INFORMATION
  Report Type: 
  Country: None (occurrence: None)
  Receive Date: 20110516
  Receipt Date: 20110510
  Transmission Date: 20111010
  Serious: Yes (Hospitalization)
  Sender: FDA-Public Use
  Company Number: BR-MEDIMMUNE-MEDI-0013190

PATIENT
  Sex: Male
  Weight: 8.07 kg

DRUGS (5)
  1. SYNAGIS [Suspect]
     Indication: CARDIOMYOPATHY
     Route: 030
     Dates: start: 20100429, end: 20100429
  2. FUROSEMIDE [Concomitant]
     Indication: SURGERY
     Route: 048
     Dates: start: 20100330
  3. SPIRONOLACTONE [Concomitant]
     Route: 048
  4. CAPTOPRIL [Concomitant]
     Route: 048
     Dates: start: 20100330, end: 20110405
  5. SYNAGIS [Suspect]

REACTIONS (9)
  - DECREASED APPETITE [None]
  - DIARRHOEA [None]
  - PYREXIA [None]
  - BRONCHOSPASM [None]
  - MALAISE [None]
  - SOMNOLENCE [None]
  - PNEUMONIA [None]
  - ROTAVIRUS INFECTION [None]
  - VOMITING [None]
